FAERS Safety Report 4328638-0 (Version None)
Quarter: 2004Q1

REPORT INFORMATION
  Report Type: 
  Country: None (occurrence: None)
  Receive Date: 20040329
  Receipt Date: 20040309
  Transmission Date: 20041129
  Serious: No
  Sender: FDA-Public Use
  Company Number: 601133

PATIENT
  Age: 51 Year
  Sex: Female
  Weight: 55.3388 kg

DRUGS (2)
  1. TISSEEL VH KIT [Suspect]
     Dosage: 5 ML; ONCE; TOPICAL
     Route: 061
     Dates: start: 20031217, end: 20031217
  2. NEXIUM [Concomitant]

REACTIONS (2)
  - GASTRIC DISORDER [None]
  - POST PROCEDURAL COMPLICATION [None]
